FAERS Safety Report 4907758-3 (Version None)
Quarter: 2006Q1

REPORT INFORMATION
  Report Type: 
  Country: None (occurrence: None)
  Receive Date: 20060210
  Receipt Date: 20060130
  Transmission Date: 20060701
  Serious: Yes (Other)
  Sender: FDA-Public Use
  Company Number: CA-JNJFOC-20051004636

PATIENT
  Sex: Male
  Weight: 84 kg

DRUGS (8)
  1. REMICADE [Suspect]
     Route: 042
  2. REMICADE [Suspect]
     Route: 042
  3. REMICADE [Suspect]
     Indication: RHEUMATOID ARTHRITIS
     Route: 042
  4. PREDNISONE [Concomitant]
  5. CELEBREX [Concomitant]
  6. ZOPLICLONE [Concomitant]
  7. TYLENOL NO 1 [Concomitant]
     Dosage: 2 TABS EVERY 4 HOURS
  8. DILAUDID [Concomitant]

REACTIONS (3)
  - ARTHROPATHY [None]
  - FATIGUE [None]
  - PSORIASIS [None]
